FAERS Safety Report 6667957-X (Version None)
Quarter: 2010Q2

REPORT INFORMATION
  Report Type: 
  Country: None (occurrence: None)
  Receive Date: 20100405
  Receipt Date: 20100330
  Transmission Date: 20101027
  Serious: Yes (Death, Other)
  Sender: FDA-Public Use
  Company Number: US-GILEAD-2010-0027961

PATIENT
  Sex: Female
  Weight: 69.916 kg

DRUGS (17)
  1. LETAIRIS [Suspect]
     Indication: PULMONARY ARTERIAL HYPERTENSION
     Route: 048
     Dates: start: 20090803, end: 20100301
  2. REVATIO [Concomitant]
     Indication: PULMONARY ARTERIAL HYPERTENSION
     Dates: start: 20090401, end: 20100301
  3. BABY ASPIRIN [Concomitant]
  4. DILTIAZEM HCL [Concomitant]
  5. VENTOLIN HFA [Concomitant]
  6. SOL-MEDROL [Concomitant]
  7. SYMBICORT [Concomitant]
     Indication: CHRONIC OBSTRUCTIVE PULMONARY DISEASE
     Dates: start: 20090101, end: 20100301
  8. SPIRIVA [Concomitant]
  9. SYNTHROID [Concomitant]
     Indication: HYPOTHYROIDISM
     Dates: end: 20100301
  10. LEVAQUIN [Concomitant]
  11. REVLIMID [Concomitant]
     Indication: LEUKAEMIA
  12. VIDAZA [Concomitant]
     Indication: LEUKAEMIA
  13. ZYVOX [Concomitant]
  14. ZOCOR [Concomitant]
  15. VITAMIN B-12 [Concomitant]
  16. CALCIUM +D [Concomitant]
  17. VITAMIN D [Concomitant]

REACTIONS (2)
  - MYELOPROLIFERATIVE DISORDER [None]
  - PANCYTOPENIA [None]
